FAERS Safety Report 5908702-2 (Version None)
Quarter: 2008Q4

REPORT INFORMATION
  Report Type: 
  Country: None (occurrence: None)
  Receive Date: 20081006
  Receipt Date: 20080930
  Transmission Date: 20090506
  Serious: Yes (Other)
  Sender: FDA-Public Use
  Company Number: A0749828A

PATIENT
  Age: 81 Year
  Sex: Male

DRUGS (10)
  1. REQUIP XL [Suspect]
     Indication: PARKINSON'S DISEASE
     Dosage: 6MG PER DAY
     Route: 048
  2. SINEMET CR [Concomitant]
  3. AMANTADINE [Concomitant]
  4. VISTARIL [Concomitant]
  5. UNSPECIFIED MEDICATION [Concomitant]
  6. LIPITOR [Concomitant]
  7. GLYBURIDE [Concomitant]
  8. METFORMIN HCL [Concomitant]
  9. UNSPECIFIED MEDICATION [Concomitant]
  10. NEUPRO [Concomitant]

REACTIONS (1)
  - LOSS OF CONSCIOUSNESS [None]
